FAERS Safety Report 12269244 (Version 1)
Quarter: 2016Q2

REPORT INFORMATION
  Report Type: Report from Study
  Country: DK (occurrence: DK)
  Receive Date: 20160414
  Receipt Date: 20160414
  Transmission Date: 20160815
  Serious: Yes (Hospitalization)
  Sender: FDA-Public Use
  Company Number: PHHY2016DK048124

PATIENT

DRUGS (1)
  1. AIRFLUSAL FORSPIRO [Suspect]
     Active Substance: FLUTICASONE PROPIONATE\SALMETEROL XINAFOATE
     Indication: PRODUCT USED FOR UNKNOWN INDICATION
     Route: 065

REACTIONS (2)
  - Chronic sinusitis [Recovered/Resolved]
  - Hordeolum [Recovered/Resolved]

NARRATIVE: CASE EVENT DATE: 20150202
